FAERS Safety Report 5682772-1 (Version None)
Quarter: 2008Q1

REPORT INFORMATION
  Report Type: 
  Country: None (occurrence: None)
  Receive Date: 20080326
  Receipt Date: 20080326
  Transmission Date: 20080703
  Serious: Yes (Life-Threatening, Other)
  Sender: FDA-Public Use
  Company Number: None

PATIENT
  Age: 80 Year
  Sex: Female
  Weight: 56.6996 kg

DRUGS (1)
  1. DURAGESIC-25 [Suspect]
     Indication: PAIN
     Dosage: 1 PATCH EVERY 72 HOURS TRANSDERMAL
     Route: 062
     Dates: start: 20030227, end: 20030513

REACTIONS (6)
  - CONVULSION [None]
  - DISORIENTATION [None]
  - GENERAL PHYSICAL HEALTH DETERIORATION [None]
  - HALLUCINATION, VISUAL [None]
  - SPEECH DISORDER [None]
  - TREATMENT NONCOMPLIANCE [None]
